FAERS Safety Report 9665008 (Version 8)
Quarter: 2014Q2

REPORT INFORMATION
  Report Type: Report from Study
  Country: TR (occurrence: TR)
  Receive Date: 20131101
  Receipt Date: 20140516
  Transmission Date: 20141212
  Serious: Yes (Hospitalization)
  Sender: FDA-Public Use
  Company Number: TR-B.I. PHARMACEUTICALS,INC./RIDGEFIELD-2013-BI-29216BI

PATIENT
  Age: 52 Year
  Sex: Male
  Weight: 71 kg

DRUGS (8)
  1. BIBW 2992 [Suspect]
     Indication: SQUAMOUS CELL CARCINOMA OF LUNG
     Dosage: 40 MG
     Route: 048
     Dates: start: 20130826, end: 20131020
  2. BIBW 2992 [Suspect]
     Dosage: 50 MG
     Route: 048
     Dates: start: 20130826, end: 20131022
  3. CATAFLAM [Suspect]
     Indication: BONE PAIN
     Dosage: 100 MG
     Route: 048
     Dates: start: 20130826
  4. DURAGESIC [Concomitant]
     Indication: BONE PAIN
     Dosage: 100 MCG
     Route: 062
     Dates: start: 20130826
  5. GERALGINE K [Concomitant]
     Indication: BONE PAIN
     Dosage: DAILY DOSE; 600/ 90/ 30 MG
     Route: 048
     Dates: start: 20130826
  6. BONEFOS [Concomitant]
     Indication: BONE PAIN
     Dosage: 1600 MG
     Route: 048
     Dates: start: 20130903
  7. GLUCERNA SR [Concomitant]
     Indication: NUTRITIONAL SUPPLEMENTATION
     Dosage: 920 ML
     Route: 048
     Dates: start: 20130903
  8. MEGACE [Concomitant]
     Indication: NUTRITIONAL SUPPLEMENTATION
     Dosage: 480 MG
     Route: 048
     Dates: start: 20130903

REACTIONS (4)
  - Pleuritic pain [Not Recovered/Not Resolved]
  - General physical health deterioration [Recovered/Resolved]
  - Back pain [Not Recovered/Not Resolved]
  - Cough [Not Recovered/Not Resolved]
